FAERS Safety Report 24901187 (Version 1)
Quarter: 2025Q1

REPORT INFORMATION
  Report Type: Spontaneous
  Country: FR (occurrence: FR)
  Receive Date: 20250129
  Receipt Date: 20250129
  Transmission Date: 20250409
  Serious: Yes (Hospitalization)
  Sender: NOVARTIS
  Company Number: None

PATIENT
  Age: 14 Year
  Sex: Female
  Weight: 47 kg

DRUGS (1)
  1. TEGRETOL [Suspect]
     Active Substance: CARBAMAZEPINE
     Indication: Wrong strength
     Route: 048
     Dates: start: 20241204, end: 20241204

REACTIONS (6)
  - Confusional state [Recovered/Resolved]
  - Vertigo [Recovered/Resolved]
  - Dysphagia [Recovered/Resolved]
  - Somnolence [Recovering/Resolving]
  - Incorrect dosage administered [Recovered/Resolved]
  - Accidental overdose [Recovered/Resolved]

NARRATIVE: CASE EVENT DATE: 20241204
